FAERS Safety Report 7832084-2 (Version None)
Quarter: 2011Q4

REPORT INFORMATION
  Report Type: 
  Country: None (occurrence: None)
  Receive Date: 20111022
  Receipt Date: 20111010
  Transmission Date: 20120403
  Serious: Yes (Hospitalization)
  Sender: FDA-Public Use
  Company Number: US-BAYER-2011-015015

PATIENT
  Age: 24 Year
  Sex: Female
  Weight: 73 kg

DRUGS (17)
  1. YASMIN [Suspect]
     Indication: PREMENSTRUAL SYNDROME
  2. CIPROFLOXACIN [Concomitant]
  3. ALBUTEROL [Concomitant]
  4. SUCRALFATE [Concomitant]
  5. TRAZODONE HYDROCHLORIDE [Concomitant]
  6. PHENTERMINE [Concomitant]
  7. FLUCONAZOLE [Concomitant]
  8. YAZ [Suspect]
     Indication: PREMENSTRUAL SYNDROME
  9. EFFEXOR [Concomitant]
  10. POTASSIUM [Concomitant]
  11. TRIAMTERENE [Concomitant]
  12. YAZ [Suspect]
     Indication: CONTRACEPTION
     Dosage: UNK
     Dates: start: 20060701, end: 20070301
  13. YASMIN [Suspect]
     Indication: CONTRACEPTION
     Dosage: UNK
     Dates: start: 20050901, end: 20060701
  14. SINGULAIR [Concomitant]
  15. NEXIUM [Concomitant]
  16. ALPRAZOLAM [Concomitant]
  17. POLYETHYLENE GLYCOL [Concomitant]

REACTIONS (6)
  - CHOLELITHIASIS [None]
  - DEPRESSION [None]
  - GALLBLADDER INJURY [None]
  - ANXIETY [None]
  - PAIN [None]
  - MENTAL DISORDER [None]
